FAERS Safety Report 9889131 (Version 2)
Quarter: 2014Q1

REPORT INFORMATION
  Report Type: Spontaneous
  Country: US (occurrence: None)
  Receive Date: 20140207
  Receipt Date: 20140325
  Transmission Date: 20141002
  Serious: Yes (Other)
  Sender: FDA-Public Use
  Company Number: 2014P1000870

PATIENT
  Age: 56 Year
  Sex: Female
  Weight: 58.51 kg

DRUGS (11)
  1. OXTELLAR XR [Suspect]
     Indication: EPILEPSY
     Route: 048
     Dates: start: 2013, end: 20140127
  2. SENNA PLUS [Concomitant]
  3. ASPIRIN [Concomitant]
  4. RANITIDINE [Concomitant]
  5. LISINOPRIL [Concomitant]
  6. PRAVASTATIN [Concomitant]
  7. AMLODIPINE [Concomitant]
  8. CITALOPRAM [Concomitant]
  9. CLOPIDOGREL [Concomitant]
  10. POTASSIUM [Concomitant]
  11. ZONISAMIDE [Concomitant]

REACTIONS (2)
  - Blindness cortical [None]
  - Condition aggravated [None]
